FAERS Safety Report 15393025 (Version 3)
Quarter: 2018Q4

REPORT INFORMATION
  Report Type: Report from Study
  Country: None (occurrence: US)
  Receive Date: 20180917
  Receipt Date: 20181211
  Transmission Date: 20190204
  Serious: Yes (Other)
  Sender: FDA-Public Use
  Company Number: US-ABBVIE-18K-163-2481663-00

PATIENT
  Age: 72 Year
  Sex: Female
  Weight: 52.21 kg

DRUGS (3)
  1. LOTEMAX [Concomitant]
     Active Substance: LOTEPREDNOL ETABONATE
     Indication: DRY EYE
  2. HUMIRA [Suspect]
     Active Substance: ADALIMUMAB
     Indication: CROHN^S DISEASE
     Route: 058
  3. RESTASIS [Concomitant]
     Active Substance: CYCLOSPORINE
     Indication: DRY EYE

REACTIONS (13)
  - Ischaemic cerebral infarction [Unknown]
  - Vertigo [Not Recovered/Not Resolved]
  - Ear infection [Not Recovered/Not Resolved]
  - Meningioma [Unknown]
  - Nasal septum deviation [Unknown]
  - Borderline glaucoma [Unknown]
  - Spinal osteoarthritis [Unknown]
  - Middle ear effusion [Not Recovered/Not Resolved]
  - Sinus disorder [Not Recovered/Not Resolved]
  - Migraine [Not Recovered/Not Resolved]
  - Dry eye [Not Recovered/Not Resolved]
  - Carotid arteriosclerosis [Unknown]
  - Deafness [Not Recovered/Not Resolved]

NARRATIVE: CASE EVENT DATE: 20180910
